FAERS Safety Report 24107320 (Version 2)
Quarter: 2024Q3

REPORT INFORMATION
  Report Type: Spontaneous
  Country: DK (occurrence: DK)
  Receive Date: 20240718
  Receipt Date: 20240925
  Transmission Date: 20241016
  Serious: Yes (Other)
  Sender: SANOFI AVENTIS
  Company Number: DK-SANOFI-02121855

PATIENT
  Sex: Female

DRUGS (1)
  1. AUBAGIO [Suspect]
     Active Substance: TERIFLUNOMIDE
     Indication: Multiple sclerosis
     Dosage: 14 MG
     Dates: start: 20140625, end: 20180401

REACTIONS (8)
  - Brain injury [Unknown]
  - Acne [Unknown]
  - Periodontitis [Unknown]
  - Teeth brittle [Unknown]
  - Skin disorder [Unknown]
  - Cognitive disorder [Unknown]
  - Toothache [Unknown]
  - Alopecia [Unknown]
